FAERS Safety Report 6851132-X (Version None)
Quarter: 2010Q3

REPORT INFORMATION
  Report Type: 
  Country: None (occurrence: None)
  Receive Date: 20100716
  Receipt Date: 20071025
  Transmission Date: 20110219
  Serious: No
  Sender: FDA-Public Use
  Company Number: US-PFIZER INC-2007091652

PATIENT
  Sex: Female
  Weight: 54.4 kg

DRUGS (8)
  1. CHANTIX [Suspect]
     Indication: SMOKING CESSATION THERAPY
     Dates: end: 20071001
  2. LEVOTHROID [Concomitant]
     Indication: THYROID DISORDER
  3. CRESTOR [Concomitant]
     Indication: BLOOD CHOLESTEROL INCREASED
  4. VICODIN [Concomitant]
     Indication: BACK PAIN
  5. VICODIN [Concomitant]
     Indication: MUSCULOSKELETAL PAIN
  6. KLONOPIN [Concomitant]
  7. SPIRIVA [Concomitant]
  8. ADVAIR DISKUS 100/50 [Concomitant]

REACTIONS (5)
  - ABDOMINAL DISCOMFORT [None]
  - BLOOD CHOLESTEROL INCREASED [None]
  - DIARRHOEA [None]
  - HEADACHE [None]
  - MALAISE [None]
